FAERS Safety Report 19438195 (Version 2)
Quarter: 2021Q3

REPORT INFORMATION
  Report Type: Spontaneous
  Country: US (occurrence: US)
  Receive Date: 20210618
  Receipt Date: 20210716
  Transmission Date: 20211014
  Serious: Yes (Other)
  Sender: FDA-Public Use
  Company Number: US-PFIZER INC-2021673029

PATIENT
  Age: 54 Year
  Sex: Female
  Weight: 49.9 kg

DRUGS (1)
  1. CELEBREX [Suspect]
     Active Substance: CELECOXIB
     Indication: ARTHRALGIA
     Dosage: UNK
     Dates: start: 2010, end: 20100331

REACTIONS (7)
  - Chest discomfort [Unknown]
  - Feeling abnormal [Unknown]
  - Dizziness [Unknown]
  - Loss of consciousness [Recovered/Resolved]
  - Dyspnoea [Unknown]
  - Seizure [Unknown]
  - Influenza [Unknown]

NARRATIVE: CASE EVENT DATE: 20100331
